APPROVED DRUG PRODUCT: RIMANTADINE HYDROCHLORIDE
Active Ingredient: RIMANTADINE HYDROCHLORIDE
Strength: 100MG
Dosage Form/Route: TABLET;ORAL
Application: A076132 | Product #001
Applicant: IMPAX LABORATORIES INC
Approved: Aug 30, 2002 | RLD: No | RS: Yes | Type: RX